FAERS Safety Report 5905859-4 (Version None)
Quarter: 2008Q4

REPORT INFORMATION
  Report Type: 
  Country: None (occurrence: None)
  Receive Date: 20081001
  Receipt Date: 20081001
  Transmission Date: 20090506
  Serious: Yes (Life-Threatening, Other)
  Sender: FDA-Public Use
  Company Number: None

PATIENT
  Age: 59 Year
  Sex: Female
  Weight: 90.7194 kg

DRUGS (4)
  1. BYETTA [Suspect]
     Indication: BLOOD GLUCOSE
     Dosage: 10 MG BID SQ
     Route: 058
     Dates: start: 20070513, end: 20071115
  2. BYETTA [Suspect]
     Indication: WEIGHT CONTROL
     Dosage: 10 MG BID SQ
     Route: 058
     Dates: start: 20070513, end: 20071115
  3. BYETTA [Suspect]
     Indication: BLOOD GLUCOSE
     Dosage: 10 MG BID SQ
     Route: 058
     Dates: start: 20071215, end: 20080110
  4. BYETTA [Suspect]
     Indication: WEIGHT CONTROL
     Dosage: 10 MG BID SQ
     Route: 058
     Dates: start: 20071215, end: 20080110

REACTIONS (6)
  - ANOREXIA [None]
  - BACK PAIN [None]
  - FATIGUE [None]
  - NAUSEA [None]
  - PANCREATIC CARCINOMA STAGE III [None]
  - WEIGHT DECREASED [None]
